FAERS Safety Report 6945070-1 (Version None)
Quarter: 2010Q3

REPORT INFORMATION
  Report Type: 
  Country: None (occurrence: None)
  Receive Date: 20100827
  Receipt Date: 20100823
  Transmission Date: 20110219
  Serious: Yes (Death, Hospitalization)
  Sender: FDA-Public Use
  Company Number: PHHY2010FR37973

PATIENT
  Sex: Male

DRUGS (4)
  1. STALEVO 100 [Suspect]
     Indication: PARKINSON'S DISEASE
     Dosage: UNK
     Dates: start: 20100412, end: 20100510
  2. ESOMEPRAZOLE MAGNESIUM [Concomitant]
  3. TAMSULOSIN HCL [Concomitant]
  4. EXELON [Concomitant]

REACTIONS (3)
  - ACUTE RESPIRATORY FAILURE [None]
  - DUST INHALATION PNEUMOPATHY [None]
  - INTERSTITIAL LUNG DISEASE [None]
